FAERS Safety Report 10082589 (Version 1)
Quarter: 2014Q2

REPORT INFORMATION
  Report Type: Spontaneous
  Country: US (occurrence: US)
  Receive Date: 20140416
  Receipt Date: 20140416
  Transmission Date: 20141212
  Serious: No
  Sender: FDA-Public Use
  Company Number: US-009507513-1404USA006101

PATIENT
  Age: 23 Year
  Sex: Female

DRUGS (2)
  1. NEXPLANON [Suspect]
     Dosage: UNK
     Dates: start: 20140404, end: 20140404
  2. NEXPLANON [Suspect]
     Dosage: UNK
     Route: 059
     Dates: start: 20140404

REACTIONS (3)
  - Device difficult to use [Recovered/Resolved]
  - Needle issue [Recovered/Resolved]
  - Product quality issue [Unknown]
